FAERS Safety Report 15757583 (Version 1)
Quarter: 2018Q4

REPORT INFORMATION
  Report Type: Report from Study
  Country: None (occurrence: DK)
  Receive Date: 20181224
  Receipt Date: 20181224
  Transmission Date: 20190205
  Serious: Yes (Death, Other)
  Sender: FDA-Public Use
  Company Number: DK-UNICHEM PHARMACEUTICALS (USA) INC-UCM201812-000362

PATIENT
  Age: 49 Year
  Sex: Male

DRUGS (6)
  1. TOPIRAMATE. [Suspect]
     Active Substance: TOPIRAMATE
  2. TRAMADOL. [Suspect]
     Active Substance: TRAMADOL
  3. ACETAMINOPHEN. [Suspect]
     Active Substance: ACETAMINOPHEN
  4. VERAPAMIL [Suspect]
     Active Substance: VERAPAMIL HYDROCHLORIDE
  5. CODEINE [Suspect]
     Active Substance: CODEINE
  6. QUETIAPINE. [Suspect]
     Active Substance: QUETIAPINE

REACTIONS (8)
  - Blood pressure decreased [Not Recovered/Not Resolved]
  - Urine output decreased [Not Recovered/Not Resolved]
  - Bradycardia [Not Recovered/Not Resolved]
  - Seizure [Not Recovered/Not Resolved]
  - Electrocardiogram ST segment depression [Not Recovered/Not Resolved]
  - Cardiac arrest [Fatal]
  - Pulseless electrical activity [Not Recovered/Not Resolved]
  - Coma scale abnormal [Not Recovered/Not Resolved]
